FAERS Safety Report 6259739-8 (Version None)
Quarter: 2009Q3

REPORT INFORMATION
  Report Type: 
  Country: None (occurrence: None)
  Receive Date: 20090701
  Receipt Date: 20090626
  Transmission Date: 20100115
  Serious: Yes (Death)
  Sender: FDA-Public Use
  Company Number: CHPA2009US14196

PATIENT
  Age: 72 Year
  Sex: Male

DRUGS (1)
  1. BENEFIBER SUGAR FREE (NCH) (WHEAT DEXTRIN) CHEWABLE TABLET [Suspect]
     Dosage: ORAL
     Route: 048

REACTIONS (1)
  - CARDIAC FAILURE [None]
